FAERS Safety Report 7453060-8 (Version None)
Quarter: 2011Q2

REPORT INFORMATION
  Report Type: 
  Country: None (occurrence: None)
  Receive Date: 20110502
  Receipt Date: 20101230
  Transmission Date: 20111010
  Serious: No
  Sender: FDA-Public Use
  Company Number: US-ASTRAZENECA-2010SE61482

PATIENT
  Sex: Female

DRUGS (6)
  1. NEXIUM [Suspect]
     Indication: GASTROOESOPHAGEAL REFLUX DISEASE
     Route: 048
     Dates: start: 20080101
  2. DIOVAN HCT [Concomitant]
     Indication: HYPERTENSION
  3. BYSTOLIC [Concomitant]
     Indication: HYPERTENSION
  4. CALCIUM [Concomitant]
  5. M.V.I. [Concomitant]
  6. COQ10 [Concomitant]

REACTIONS (2)
  - DRUG DOSE OMISSION [None]
  - DYSPEPSIA [None]
